FAERS Safety Report 18500752 (Version 1)
Quarter: 2020Q4

REPORT INFORMATION
  Report Type: Report from Study
  Country: None (occurrence: US)
  Receive Date: 20201113
  Receipt Date: 20201113
  Transmission Date: 20210114
  Serious: Yes (Hospitalization, Other)
  Sender: FDA-Public Use
  Company Number: US-ABBVIE-19K-163-3183040-00

PATIENT
  Age: 47 Year
  Sex: Female

DRUGS (1)
  1. HUMIRA [Suspect]
     Active Substance: ADALIMUMAB
     Indication: RHEUMATOID ARTHRITIS
     Route: 058

REACTIONS (10)
  - Loss of consciousness [Unknown]
  - Bone graft [Recovering/Resolving]
  - Speech disorder [Unknown]
  - Sepsis [Unknown]
  - Herpes zoster [Recovered/Resolved]
  - Seizure [Unknown]
  - Spinal operation [Recovering/Resolving]
  - Encephalitis [Unknown]
  - Gait inability [Unknown]
  - Malaise [Unknown]

NARRATIVE: CASE EVENT DATE: 2019
